FAERS Safety Report 18348119 (Version 1)
Quarter: 2020Q4

REPORT INFORMATION
  Report Type: Spontaneous
  Country: US (occurrence: US)
  Receive Date: 20201005
  Receipt Date: 20201005
  Transmission Date: 20210114
  Serious: Yes (Other)
  Sender: FDA-Public Use
  Company Number: None

PATIENT
  Age: 46 Year
  Sex: Female
  Weight: 81.4 kg

DRUGS (19)
  1. REMDESIVIR. [Suspect]
     Active Substance: REMDESIVIR
     Indication: COVID-19
     Dosage: ?          OTHER FREQUENCY:1X ONLY;?
     Route: 042
     Dates: start: 20200929, end: 20200929
  2. ACETAZOLAMIDE INJECTION [Concomitant]
     Dates: start: 20200930, end: 20200930
  3. ENOXAPRIN INJECTION [Concomitant]
     Dates: start: 20200926, end: 20201005
  4. DEXAMETHASONE INJECTION [Concomitant]
     Active Substance: DEXAMETHASONE
     Dates: start: 20200930, end: 20201005
  5. FENTANYL INFUSION [Concomitant]
     Active Substance: FENTANYL
     Dates: start: 20200927, end: 20200930
  6. REMDESIVIR. [Suspect]
     Active Substance: REMDESIVIR
     Indication: COVID-19
     Route: 042
     Dates: start: 20200930, end: 20201001
  7. POTASSIUM BICARB-CITRIC ACID TABLET [Concomitant]
     Dates: start: 20200930, end: 20200930
  8. ACETAMINOPHEN TABLET [Concomitant]
     Active Substance: ACETAMINOPHEN
     Dates: start: 20200926, end: 20201002
  9. FUROSEMIDE INJECTION [Concomitant]
     Active Substance: FUROSEMIDE
     Dates: start: 20200928, end: 20201002
  10. CALCIUM GLUCONATE IV [Concomitant]
     Dates: start: 20200930, end: 20200930
  11. ROCURONIUM INFUSION [Concomitant]
     Dates: start: 20200927, end: 20200929
  12. PANTOPRAZOLE INJECTION [Concomitant]
     Active Substance: PANTOPRAZOLE
     Dates: start: 20200928, end: 20201002
  13. PROPOFOL INFUSION [Concomitant]
     Active Substance: PROPOFOL
     Dates: start: 20200927, end: 20200930
  14. POTASSIUM CHLORIDE IV [Concomitant]
     Dates: start: 20200928, end: 20200929
  15. INSULIN LISPRO [Concomitant]
     Active Substance: INSULIN LISPRO
     Dates: start: 20200928, end: 20201004
  16. METOLAZONE TABLET [Concomitant]
     Active Substance: METOLAZONE
     Dates: start: 20200929, end: 20200929
  17. MIDAZOLAM INFUSION [Concomitant]
     Active Substance: MIDAZOLAM HYDROCHLORIDE
     Dates: start: 20200927, end: 20200930
  18. ODANSETRON TABLET [Concomitant]
     Dates: start: 20200930, end: 20201001
  19. POTASSIUM CHLORIDE IV [Concomitant]
     Dates: start: 20201001, end: 20201002

REACTIONS (1)
  - Transaminases increased [None]

NARRATIVE: CASE EVENT DATE: 20201002
